FAERS Safety Report 10182153 (Version 1)
Quarter: 2014Q2

REPORT INFORMATION
  Report Type: Spontaneous
  Country: GR (occurrence: GR)
  Receive Date: 20140520
  Receipt Date: 20140520
  Transmission Date: 20141212
  Serious: Yes (Other)
  Sender: FDA-Public Use
  Company Number: GR-ROCHE-1401409

PATIENT
  Sex: Male

DRUGS (2)
  1. MIRCERA [Suspect]
     Indication: RENAL FAILURE
     Route: 065
  2. ARANESP [Suspect]
     Indication: RENAL FAILURE
     Route: 065

REACTIONS (1)
  - Antibody test positive [Unknown]
